FAERS Safety Report 12628570 (Version 1)
Quarter: 2016Q3

REPORT INFORMATION
  Report Type: Spontaneous
  Country: ZW (occurrence: None)
  Receive Date: 20160805
  Receipt Date: 20160805
  Transmission Date: 20161109
  Serious: Yes (Other)
  Sender: FDA-Public Use
  Company Number: None

PATIENT
  Age: 34 Year
  Sex: Female
  Weight: 55 kg

DRUGS (1)
  1. MIRENA [Suspect]
     Active Substance: LEVONORGESTREL
     Indication: MENORRHAGIA
     Dosage: INTRA-UTERINE
     Route: 015

REACTIONS (4)
  - Impaired quality of life [None]
  - Vaginal discharge [None]
  - Bacterial vaginosis [None]
  - Vaginal haemorrhage [None]

NARRATIVE: CASE EVENT DATE: 20160711
